FAERS Safety Report 4932892-1 (Version None)
Quarter: 2006Q1

REPORT INFORMATION
  Report Type: 
  Country: None (occurrence: None)
  Receive Date: 20060302
  Receipt Date: 20060302
  Transmission Date: 20060701
  Serious: Yes (Death, Hospitalization)
  Sender: FDA-Public Use
  Company Number: None

PATIENT
  Sex: Female
  Weight: 20 kg

DRUGS (3)
  1. DOXORUBICIN HCL [Suspect]
     Indication: LYMPHOMA
     Dosage: 23 MG
     Dates: start: 20051116, end: 20051116
  2. PREDNISONE [Suspect]
     Dosage: 90 MG
     Dates: start: 20051116, end: 20051120
  3. VINBLASTINE SULFATE [Suspect]
     Dosage: 3.8 MG
     Dates: start: 20051116, end: 20051120

REACTIONS (18)
  - BLOOD PRESSURE IMMEASURABLE [None]
  - CAPILLARY DISORDER [None]
  - DYSPNOEA [None]
  - HAEMODIALYSIS [None]
  - HEART RATE DECREASED [None]
  - HYPOTENSION [None]
  - HYPOXIA [None]
  - INTERCOSTAL RETRACTION [None]
  - LETHARGY [None]
  - NERVOUS SYSTEM DISORDER [None]
  - ORAL INTAKE REDUCED [None]
  - PULMONARY HYPERTENSION [None]
  - PULMONARY OEDEMA [None]
  - RALES [None]
  - RENAL FAILURE ACUTE [None]
  - SHOCK [None]
  - THERAPY NON-RESPONDER [None]
  - WHEEZING [None]
